FAERS Safety Report 10480700 (Version 1)
Quarter: 2014Q3

REPORT INFORMATION
  Report Type: Spontaneous
  Country: US (occurrence: US)
  Receive Date: 20140929
  Receipt Date: 20140929
  Transmission Date: 20150326
  Serious: No
  Sender: FDA-Public Use
  Company Number: US-PFIZER INC-2014261437

PATIENT
  Age: 64 Year
  Sex: Female
  Weight: 78.46 kg

DRUGS (4)
  1. LYRICA [Suspect]
     Active Substance: PREGABALIN
     Indication: FIBROMYALGIA
     Dosage: 50 MG, 3X/DAY
     Route: 048
     Dates: start: 2012
  2. LYRICA [Suspect]
     Active Substance: PREGABALIN
     Dosage: 2 CAPSULES AT NIGHT
     Route: 048
  3. BUPROPION [Concomitant]
     Active Substance: BUPROPION
     Indication: ANTIDEPRESSANT THERAPY
     Dosage: UNK
  4. LYRICA [Suspect]
     Active Substance: PREGABALIN
     Dosage: UNK, AS NEEDED
     Route: 048

REACTIONS (5)
  - Pain [Unknown]
  - Neuralgia [Unknown]
  - Activities of daily living impaired [Unknown]
  - Therapeutic response changed [Unknown]
  - Intentional product misuse [Unknown]
